FAERS Safety Report 25592219 (Version 8)
Quarter: 2025Q4

REPORT INFORMATION
  Report Type: Report from Study
  Country: US (occurrence: US)
  Receive Date: 20250722
  Receipt Date: 20251211
  Transmission Date: 20260117
  Serious: Yes (Hospitalization)
  Sender: JAZZ
  Company Number: US-JP0122-2025-GWEP19022 - CANNABIDIOL IN LGS AND DS000006

PATIENT
  Age: 4 Year
  Sex: Female
  Weight: 17 kg

DRUGS (20)
  1. EPIDIOLEX [Suspect]
     Active Substance: CANNABIDIOL
     Indication: Epilepsy with myoclonic-atonic seizures
     Dosage: 120 MILLIGRAM, BID
     Dates: start: 20220617
  2. EPIDIOLEX [Suspect]
     Active Substance: CANNABIDIOL
     Dosage: 13 MILLIGRAM/KILOGRAM, DAILY
  3. EPIDIOLEX [Suspect]
     Active Substance: CANNABIDIOL
     Dosage: 15 MILLIGRAM/KILOGRAM, DAILY
  4. VITAMIN D NOS [Concomitant]
     Active Substance: CHOLECALCIFEROL\ERGOCALCIFEROL
     Indication: Nutritional supplementation
     Dosage: 10 DOSAGE FORM, DAILY
  5. AQUAFOR [Concomitant]
     Indication: Eczema
     Dosage: 1 DOSAGE FORM (TOPICAL)
     Dates: start: 202004
  6. AVEENO BATH [Concomitant]
     Indication: Eczema
     Dosage: 1 DOSAGE FORM, DAILY, TOPICAL
  7. CULTURELLE [Concomitant]
     Active Substance: LACTOBACILLUS RHAMNOSUS
     Indication: Constipation
     Dosage: 0.5 DOSAGE FORM, DAILY
  8. CULTURELLE [Concomitant]
     Active Substance: LACTOBACILLUS RHAMNOSUS
     Indication: Probiotic therapy
     Dosage: 1 DOSAGE FORM, DAILY
  9. MINERALS\VITAMINS [Concomitant]
     Active Substance: MINERALS\VITAMINS
     Indication: Medical diet
     Dosage: 2 DOSAGE FORM, DAILY
  10. VITAMIN B6 [Concomitant]
     Active Substance: PYRIDOXINE HYDROCHLORIDE
     Indication: Prophylaxis
     Dosage: 150 MILLIGRAM DAILY
  11. COCONUT OIL [Concomitant]
     Active Substance: COCONUT OIL
     Indication: Medical diet
     Dosage: 7.5 MILLILITER, TID
     Dates: start: 20220502
  12. CYTRA-K [Concomitant]
     Active Substance: CITRIC ACID MONOHYDRATE\POTASSIUM CITRATE
     Indication: Medical diet
     Dosage: 7 MILLILITER, TID
     Dates: start: 20220523
  13. CARNITOR [Concomitant]
     Active Substance: LEVOCARNITINE
     Indication: Medical diet
     Dosage: 165 MILLIGRAM, BID
     Dates: start: 20221013
  14. IRON [Concomitant]
     Active Substance: IRON
     Indication: Medical diet
     Dosage: 5 MILLIGRAM DAILY
  15. CALCIUM [Concomitant]
     Active Substance: CALCIUM
     Indication: Medical diet
     Dosage: 500 MILLIGRAM, DAILY
  16. EUCRISA [Concomitant]
     Active Substance: CRISABOROLE
     Indication: Eczema
     Dosage: 1 DOSAGE FORM DAILY,TOPICAL
  17. LORAZEPAM [Concomitant]
     Active Substance: LORAZEPAM
     Indication: Epilepsy with myoclonic-atonic seizures
     Dosage: 0.5 MILLIGRAM, TID
     Dates: start: 20250625, end: 20250627
  18. LORAZEPAM [Concomitant]
     Active Substance: LORAZEPAM
     Indication: Seizure
     Dosage: 0.5 MILLIGRAM, BID
     Dates: start: 20250628, end: 20250629
  19. LORAZEPAM [Concomitant]
     Active Substance: LORAZEPAM
     Dosage: 0.5 MILLIGRAM, DAILY
     Dates: start: 20250630, end: 20250701
  20. LORAZEPAM [Concomitant]
     Active Substance: LORAZEPAM
     Dosage: 1.5 MILLIGRAM, QD
     Dates: start: 20250713, end: 20250713

REACTIONS (9)
  - Seizure [Recovered/Resolved]
  - Seizure [Recovered/Resolved]
  - Hepatic enzyme increased [Recovered/Resolved]
  - Pharyngitis streptococcal [Recovered/Resolved]
  - Headache [Recovering/Resolving]
  - Otitis media [Recovering/Resolving]
  - Rhinovirus infection [Recovered/Resolved]
  - Otitis externa [Recovered/Resolved]
  - Off label use [Unknown]

NARRATIVE: CASE EVENT DATE: 20250415
